FAERS Safety Report 6196477-4 (Version None)
Quarter: 2009Q2

REPORT INFORMATION
  Report Type: 
  Country: None (occurrence: None)
  Receive Date: 20090520
  Receipt Date: 20090514
  Transmission Date: 20091009
  Serious: Yes (Other)
  Sender: FDA-Public Use
  Company Number: US-JNJFOC-20090503640

PATIENT
  Age: 52 Year
  Sex: Female
  Weight: 58.51 kg

DRUGS (1)
  1. TOPAMAX [Suspect]
     Indication: MIGRAINE PROPHYLAXIS
     Route: 048

REACTIONS (5)
  - BACK PAIN [None]
  - DIPLOPIA [None]
  - EYE DISORDER [None]
  - PAIN IN EXTREMITY [None]
  - VISION BLURRED [None]
